FAERS Safety Report 4758743-6 (Version None)
Quarter: 2005Q3

REPORT INFORMATION
  Report Type: 
  Country: None (occurrence: None)
  Receive Date: 20050831
  Receipt Date: 20050831
  Transmission Date: 20060218
  Serious: Yes (Life-Threatening)
  Sender: FDA-Public Use
  Company Number: None

PATIENT
  Age: 23 Year
  Sex: Female
  Weight: 64.8644 kg

DRUGS (2)
  1. ORTHO EVRA [Suspect]
     Indication: PULMONARY EMBOLISM
     Dosage: 1 PATCH WKLY X 3
     Dates: start: 20030529
  2. ORTHO EVRA [Suspect]
     Indication: PULMONARY EMBOLISM
     Dosage: 1 PATCH WKLY X 3
     Dates: start: 20040301

REACTIONS (10)
  - ASTHMA [None]
  - CHEST DISCOMFORT [None]
  - CHEST PAIN [None]
  - DEHYDRATION [None]
  - DIFFICULTY IN WALKING [None]
  - DYSPNOEA EXERTIONAL [None]
  - HAEMOPTYSIS [None]
  - PULMONARY EMBOLISM [None]
  - PULMONARY INFARCTION [None]
  - SYNCOPE [None]
